FAERS Safety Report 10034844 (Version 1)
Quarter: 2014Q1

REPORT INFORMATION
  Report Type: Report from Study
  Country: ES (occurrence: ES)
  Receive Date: 20140325
  Receipt Date: 20140325
  Transmission Date: 20141002
  Serious: Yes (Other)
  Sender: FDA-Public Use
  Company Number: ES-VERTEX PHARMACEUTICALS INC-2014-001426

PATIENT
  Age: 52 Year
  Sex: Female

DRUGS (6)
  1. TELAPREVIR [Suspect]
     Indication: HEPATITIS C
     Dosage: UNK
     Route: 065
  2. RIBAVIRIN [Suspect]
     Indication: HEPATITIS C
     Dosage: 400 MG, QD
     Route: 065
  3. RIBAVIRIN [Suspect]
     Dosage: 600 MG, QD
     Route: 065
  4. RIBAVIRIN [Suspect]
     Dosage: UNK
     Route: 065
  5. PEG INTERFERON [Suspect]
     Indication: HEPATITIS C
     Dosage: UNK
     Route: 065
  6. PEG INTERFERON [Suspect]
     Dosage: 135 ?G, UNK
     Route: 065

REACTIONS (3)
  - Anaemia [Unknown]
  - Neutropenia [Unknown]
  - Dyspepsia [Unknown]
